FAERS Safety Report 7951537-X (Version None)
Quarter: 2011Q4

REPORT INFORMATION
  Report Type: 
  Country: None (occurrence: None)
  Receive Date: 20111130
  Receipt Date: 20111130
  Transmission Date: 20120403
  Serious: No
  Sender: FDA-Public Use
  Company Number: None

PATIENT
  Sex: Male

DRUGS (5)
  1. VIREAD [Suspect]
     Indication: HIV INFECTION
     Dosage: 300 MG 1 DAILY PO
     Route: 048
     Dates: start: 20111118, end: 20111122
  2. VIREAD [Suspect]
     Indication: CHRONIC MYELOID LEUKAEMIA
     Dosage: 300 MG 1 DAILY PO
     Route: 048
     Dates: start: 20111118, end: 20111122
  3. VIREAD [Suspect]
     Indication: HIV INFECTION
     Dosage: 300 MG 1 DAILY PO
     Route: 048
     Dates: start: 20111120, end: 20111122
  4. VIREAD [Suspect]
     Indication: CHRONIC MYELOID LEUKAEMIA
     Dosage: 300 MG 1 DAILY PO
     Route: 048
     Dates: start: 20111120, end: 20111122
  5. TASIGNA [Concomitant]

REACTIONS (3)
  - DYSPNOEA [None]
  - DRUG HYPERSENSITIVITY [None]
  - RASH PRURITIC [None]
